FAERS Safety Report 14313458 (Version 1)
Quarter: 2017Q4

REPORT INFORMATION
  Report Type: Spontaneous
  Country: US (occurrence: US)
  Receive Date: 20171220
  Receipt Date: 20171220
  Transmission Date: 20180321
  Serious: Yes (Other)
  Sender: FDA-Public Use
  Company Number: None

PATIENT
  Age: 52 Year
  Sex: Male
  Weight: 61.2 kg

DRUGS (5)
  1. OCUVITE 50+ [Concomitant]
  2. ASPIRIN. [Concomitant]
     Active Substance: ASPIRIN
  3. MYOVIEW [Suspect]
     Active Substance: TECHNETIUM TC-99M TETROFOSMIN
     Indication: CARDIAC STRESS TEST
     Route: 042
     Dates: start: 20171211, end: 20171211
  4. MAGNESIUM CITRATE. [Concomitant]
     Active Substance: MAGNESIUM CITRATE
  5. ACEBUTOLOL (SECTRAL) [Concomitant]

REACTIONS (2)
  - Migraine with aura [None]
  - Blindness [None]

NARRATIVE: CASE EVENT DATE: 20171211
